FAERS Safety Report 5095661-0 (Version None)
Quarter: 2006Q3

REPORT INFORMATION
  Report Type: 
  Country: None (occurrence: None)
  Receive Date: 20060731
  Receipt Date: 20060425
  Transmission Date: 20061208
  Serious: No
  Sender: FDA-Public Use
  Company Number: 2006PV012745

PATIENT
  Age: 56 Year
  Sex: Female
  Weight: 97.977 kg

DRUGS (3)
  1. BYETTA [Suspect]
     Indication: DIABETES MELLITUS NON-INSULIN-DEPENDENT
     Dosage: 5 MCG; BID; SC
     Route: 058
     Dates: start: 20060321, end: 20060421
  2. AMARYL [Concomitant]
  3. AVANDIA [Concomitant]

REACTIONS (13)
  - ARTHRITIS [None]
  - CHILLS [None]
  - DECREASED APPETITE [None]
  - DIZZINESS [None]
  - FEELING ABNORMAL [None]
  - HEART RATE INCREASED [None]
  - HYPOGLYCAEMIA [None]
  - PARAESTHESIA [None]
  - PHOTOPSIA [None]
  - TONGUE DISORDER [None]
  - TREMOR [None]
  - VISION BLURRED [None]
  - WEIGHT DECREASED [None]
